FAERS Safety Report 24924834 (Version 1)
Quarter: 2025Q1

REPORT INFORMATION
  Report Type: Report from Study
  Country: US (occurrence: US)
  Receive Date: 20250204
  Receipt Date: 20250204
  Transmission Date: 20250408
  Serious: No
  Sender: EXELIXIS
  Company Number: US-EXELIXIS-CABO-24075975

PATIENT
  Age: 64 Year
  Sex: Male
  Weight: 52 kg

DRUGS (8)
  1. CABOMETYX [Suspect]
     Active Substance: CABOZANTINIB S-MALATE
     Indication: Renal cell carcinoma
     Dosage: 60 MG, QD
     Route: 048
     Dates: start: 20240301
  2. IBUPROFEN [Concomitant]
     Active Substance: IBUPROFEN
  3. JARDIANCE [Concomitant]
     Active Substance: EMPAGLIFLOZIN
  4. GLIPIZIDE [Concomitant]
     Active Substance: GLIPIZIDE
  5. TAMSULOSIN [Concomitant]
     Active Substance: TAMSULOSIN
  6. OXYCODONE [Concomitant]
     Active Substance: OXYCODONE
  7. ATORVASTATIN [Concomitant]
     Active Substance: ATORVASTATIN
  8. CARVEDILOL [Concomitant]
     Active Substance: CARVEDILOL

REACTIONS (1)
  - Blister [Unknown]

NARRATIVE: CASE EVENT DATE: 20240301
